FAERS Safety Report 6091865-9 (Version None)
Quarter: 2009Q1

REPORT INFORMATION
  Report Type: 
  Country: None (occurrence: None)
  Receive Date: 20090225
  Receipt Date: 20080825
  Transmission Date: 20090719
  Serious: No
  Sender: FDA-Public Use
  Company Number: A0744120A

PATIENT
  Age: 76 Year
  Sex: Male

DRUGS (2)
  1. VALTREX [Suspect]
     Dosage: 500MG UNKNOWN
     Route: 048
     Dates: start: 20070101
  2. PREDNISOLONE PHOSPHATE [Concomitant]

REACTIONS (1)
  - TREATMENT FAILURE [None]
